FAERS Safety Report 6758671-0 (Version None)
Quarter: 2010Q2

REPORT INFORMATION
  Report Type: 
  Country: None (occurrence: None)
  Receive Date: 20100607
  Receipt Date: 20100527
  Transmission Date: 20101027
  Serious: Yes (Other)
  Sender: FDA-Public Use
  Company Number: FR-BAXTER-2010BH014472

PATIENT
  Sex: Male

DRUGS (2)
  1. GAMMAGARD S/D [Suspect]
     Indication: SICKLE CELL ANAEMIA
     Route: 065
  2. GAMMAGARD S/D [Suspect]
     Indication: OFF LABEL USE
     Route: 065

REACTIONS (1)
  - CONDITION AGGRAVATED [None]
